FAERS Safety Report 12979371 (Version 1)
Quarter: 2016Q4

REPORT INFORMATION
  Report Type: Spontaneous
  Country: US (occurrence: US)
  Receive Date: 20161128
  Receipt Date: 20161128
  Transmission Date: 20170207
  Serious: No
  Sender: FDA-Public Use
  Company Number: US-GLAXOSMITHKLINE-US2016173924

PATIENT
  Age: 46 Year
  Sex: Female

DRUGS (2)
  1. TRANSDERM SCOP [Suspect]
     Active Substance: SCOPOLAMINE
     Indication: BALANCE DISORDER
     Dosage: UNK
     Dates: start: 201608
  2. TRANSDERM SCOP [Suspect]
     Active Substance: SCOPOLAMINE
     Indication: DIZZINESS

REACTIONS (8)
  - Off label use [Unknown]
  - Application site haemorrhage [Recovered/Resolved]
  - Application site scar [Unknown]
  - Ill-defined disorder [Not Recovered/Not Resolved]
  - Amnesia [Unknown]
  - Application site pain [Unknown]
  - Drug administered at inappropriate site [Unknown]
  - Application site vesicles [Unknown]

NARRATIVE: CASE EVENT DATE: 201610
